FAERS Safety Report 5485254-5 (Version None)
Quarter: 2007Q4

REPORT INFORMATION
  Report Type: 
  Country: None (occurrence: None)
  Receive Date: 20071010
  Receipt Date: 20071010
  Transmission Date: 20080405
  Serious: Yes (Other)
  Sender: FDA-Public Use
  Company Number: None

PATIENT
  Age: 30 Year
  Sex: Female
  Weight: 58.9676 kg

DRUGS (1)
  1. CHANTIX [Suspect]
     Indication: SMOKING CESSATION THERAPY
     Dosage: .5MG  ONCE A DAY  PO
     Route: 048
     Dates: start: 20071001, end: 20071005

REACTIONS (7)
  - DEPRESSION [None]
  - FEELING ABNORMAL [None]
  - ORAL INTAKE REDUCED [None]
  - PANIC DISORDER [None]
  - SELF-INJURIOUS IDEATION [None]
  - SUICIDAL IDEATION [None]
  - THINKING ABNORMAL [None]
